FAERS Safety Report 5570295-X (Version None)
Quarter: 2007Q4

REPORT INFORMATION
  Report Type: 
  Country: None (occurrence: None)
  Receive Date: 20071219
  Receipt Date: 20071219
  Transmission Date: 20080405
  Serious: Yes (Hospitalization)
  Sender: FDA-Public Use
  Company Number: None

PATIENT
  Age: 91 Year
  Sex: Male
  Weight: 76.6579 kg

DRUGS (3)
  1. METHIMAZOLE [Suspect]
     Indication: HYPOTHYROIDISM
     Dosage: 5MG EVERY DAY PO
     Route: 048
     Dates: start: 20070829, end: 20071003
  2. DIPYRIDAMOLE/ASPIRIN [Concomitant]
  3. TOLTERODINE TARTRATE [Concomitant]

REACTIONS (5)
  - ANAEMIA [None]
  - MOVEMENT DISORDER [None]
  - MUSCULAR WEAKNESS [None]
  - OEDEMA PERIPHERAL [None]
  - THROMBOCYTOPENIA [None]
